FAERS Safety Report 4823896-8 (Version None)
Quarter: 2005Q4

REPORT INFORMATION
  Report Type: 
  Country: None (occurrence: None)
  Receive Date: 20051107
  Receipt Date: 20051028
  Transmission Date: 20060501
  Serious: Yes (Hospitalization, Other)
  Sender: FDA-Public Use
  Company Number: 2005148068

PATIENT
  Sex: Male

DRUGS (6)
  1. LIPITOR [Suspect]
     Indication: BLOOD CHOLESTEROL INCREASED
     Dosage: 10 MG (10 MG, 1 IN 1 D)
  2. PLAVIX [Suspect]
     Indication: MYOCARDIAL INFARCTION
     Dosage: 1 D
     Dates: start: 20050101
  3. ASPIRIN [Concomitant]
  4. VITAMIN B12 [Concomitant]
  5. VITAMIN B6 (VITAMIN B6) [Concomitant]
  6. MULTIVITAMIN [Concomitant]

REACTIONS (9)
  - CORONARY ARTERY OCCLUSION [None]
  - DRUG HYPERSENSITIVITY [None]
  - DRUG INEFFECTIVE [None]
  - DRUG INTERACTION [None]
  - HIGH DENSITY LIPOPROTEIN DECREASED [None]
  - LOW DENSITY LIPOPROTEIN INCREASED [None]
  - MYALGIA [None]
  - MYOCARDIAL INFARCTION [None]
  - WEIGHT DECREASED [None]
